FAERS Safety Report 5397360-4 (Version None)
Quarter: 2007Q3

REPORT INFORMATION
  Report Type: 
  Country: None (occurrence: None)
  Receive Date: 20070726
  Receipt Date: 20070720
  Transmission Date: 20080115
  Serious: Yes (Other)
  Sender: FDA-Public Use
  Company Number: PHEH2007US03268

PATIENT
  Age: 76 Year
  Sex: Female

DRUGS (2)
  1. TRILEPTAL [Suspect]
     Dosage: 150 MG, QHS
     Dates: start: 20040101
  2. TRILEPTAL [Suspect]
     Dosage: 1/2 TABLETS OF 150 MG, QHS

REACTIONS (2)
  - CONVULSION [None]
  - FALL [None]
